FAERS Safety Report 24576463 (Version 4)
Quarter: 2025Q1

REPORT INFORMATION
  Report Type: Spontaneous
  Country: CA (occurrence: CA)
  Receive Date: 20241104
  Receipt Date: 20250318
  Transmission Date: 20250409
  Serious: Yes (Hospitalization, Other)
  Sender: PFIZER
  Company Number: CA-PFIZER INC-202200902358

PATIENT
  Age: 36 Year
  Sex: Female
  Weight: 92 kg

DRUGS (18)
  1. RUXIENCE [Suspect]
     Active Substance: RITUXIMAB-PVVR
     Indication: Granulomatosis with polyangiitis
     Dosage: 750 MG, ONCE WEEKLY FOR 4 WEEKS
     Route: 042
     Dates: start: 20220604, end: 20220720
  2. RUXIENCE [Suspect]
     Active Substance: RITUXIMAB-PVVR
     Indication: Anti-neutrophil cytoplasmic antibody positive vasculitis
     Dosage: 750 MG, ONCE WEEKLY FOR 4 WEEKS
     Route: 042
     Dates: start: 20220624
  3. RUXIENCE [Suspect]
     Active Substance: RITUXIMAB-PVVR
     Dosage: 750 MG, ONCE WEEKLY FOR 4 WEEKS
     Route: 042
     Dates: start: 20220629
  4. RUXIENCE [Suspect]
     Active Substance: RITUXIMAB-PVVR
     Dosage: 750 MG, ONCE WEEKLY FOR 4 WEEKS
     Route: 042
     Dates: start: 20220720
  5. RUXIENCE [Suspect]
     Active Substance: RITUXIMAB-PVVR
     Route: 042
     Dates: start: 202304
  6. RUXIENCE [Suspect]
     Active Substance: RITUXIMAB-PVVR
     Route: 042
     Dates: start: 20231108, end: 20231108
  7. RUXIENCE [Suspect]
     Active Substance: RITUXIMAB-PVVR
     Route: 042
     Dates: start: 20240508
  8. RUXIENCE [Suspect]
     Active Substance: RITUXIMAB-PVVR
     Route: 042
  9. RUXIENCE [Suspect]
     Active Substance: RITUXIMAB-PVVR
     Route: 042
     Dates: start: 20250312
  10. ACETAMINOPHEN [Concomitant]
     Active Substance: ACETAMINOPHEN
     Indication: Premedication
     Route: 048
     Dates: start: 20220629, end: 20220629
  11. ADALAT [Concomitant]
     Active Substance: NIFEDIPINE
     Indication: Premedication
  12. DIPHENHYDRAMINE [Concomitant]
     Active Substance: DIPHENHYDRAMINE
     Indication: Premedication
     Route: 048
     Dates: start: 20220629, end: 20220629
  13. METHYLPREDNISOLONE [Concomitant]
     Active Substance: METHYLPREDNISOLONE
     Indication: Premedication
     Route: 042
     Dates: start: 20220629, end: 20220629
  14. FLOVENT [Concomitant]
     Active Substance: FLUTICASONE PROPIONATE
     Dosage: UNK, 2X/DAY (2X PER DAY AND PRN)
  15. PERINDOPRIL [Concomitant]
     Active Substance: PERINDOPRIL
  16. SYNTHROID [Concomitant]
     Active Substance: LEVOTHYROXINE SODIUM
  17. SEVELAMER [Concomitant]
     Active Substance: SEVELAMER
  18. VENTOLIN [Concomitant]
     Active Substance: ALBUTEROL SULFATE
     Dosage: UNK, 2X/DAY (2X PER DAY AND PRN)

REACTIONS (8)
  - Coronary artery thrombosis [Recovered/Resolved]
  - Coma [Recovered/Resolved]
  - Post procedural complication [Recovered/Resolved]
  - Extubation [Recovered/Resolved]
  - Hypertension [Not Recovered/Not Resolved]
  - Off label use [Unknown]
  - Intentional product use issue [Unknown]
  - Product use issue [Unknown]

NARRATIVE: CASE EVENT DATE: 20220628
